FAERS Safety Report 12759187 (Version 2)
Quarter: 2017Q3

REPORT INFORMATION
  Report Type: Spontaneous
  Country: US (occurrence: US)
  Receive Date: 20160919
  Receipt Date: 20170920
  Transmission Date: 20171127
  Serious: No
  Sender: FDA-Public Use
  Company Number: US-BAUSCH-BL-2016-003855

PATIENT
  Sex: Male

DRUGS (1)
  1. DIASTAT [Suspect]
     Active Substance: DIAZEPAM
     Indication: SEIZURE
     Dosage: 1 AS NEEDED FOR SEIZURES
     Route: 054

REACTIONS (1)
  - Device issue [Unknown]
